FAERS Safety Report 15229545 (Version 2)
Quarter: 2018Q3

REPORT INFORMATION
  Report Type: Report from Study
  Country: US (occurrence: US)
  Receive Date: 20180802
  Receipt Date: 20180806
  Transmission Date: 20181010
  Serious: Yes (Hospitalization)
  Sender: FDA-Public Use
  Company Number: US-BRISTOL-MYERS SQUIBB COMPANY-BMS-2018-071116

PATIENT
  Age: 48 Year
  Sex: Female
  Weight: 77.7 kg

DRUGS (2)
  1. IPILIMUMAB [Suspect]
     Active Substance: IPILIMUMAB
     Indication: DIFFUSE LARGE B-CELL LYMPHOMA
     Dosage: 1 MG/KG, Q3WK
     Route: 042
     Dates: start: 20180710
  2. NIVOLUMAB [Suspect]
     Active Substance: NIVOLUMAB
     Indication: DIFFUSE LARGE B-CELL LYMPHOMA
     Dosage: 3 MG/KG, UNK
     Route: 042
     Dates: start: 20180710

REACTIONS (2)
  - Urinary tract infection [Unknown]
  - Pyrexia [Unknown]

NARRATIVE: CASE EVENT DATE: 20180726
